FAERS Safety Report 7113202-0 (Version None)
Quarter: 2010Q4

REPORT INFORMATION
  Report Type: 
  Country: None (occurrence: None)
  Receive Date: 20101119
  Receipt Date: 20091106
  Transmission Date: 20110411
  Serious: No
  Sender: FDA-Public Use
  Company Number: A0815797A

PATIENT
  Sex: Male

DRUGS (2)
  1. WELLBUTRIN SR [Suspect]
     Route: 048
     Dates: start: 20090801
  2. UNKNOWN [Concomitant]

REACTIONS (2)
  - IRRITABILITY [None]
  - THERAPEUTIC RESPONSE UNEXPECTED [None]
